FAERS Safety Report 8775421 (Version 2)
Quarter: 2012Q4

REPORT INFORMATION
  Report Type: Report from Study
  Country: US (occurrence: US)
  Receive Date: 20120910
  Receipt Date: 20120910
  Transmission Date: 20130627
  Serious: Yes (Hospitalization)
  Sender: FDA-Public Use
  Company Number: US-ROCHE-778792

PATIENT
  Age: 72 Year
  Sex: Female
  Weight: 60.8 kg

DRUGS (10)
  1. VISMODEGIB/VISMODEGIB [Suspect]
     Indication: BASAL CELL CARCINOMA
     Dosage: 150 UNK, QD; date of last dose: 11/May/2011
     Route: 048
  2. WARFARIN SODIUM [Suspect]
     Indication: ATRIAL FIBRILLATION
     Route: 065
  3. LABETALOL [Concomitant]
     Indication: PRODUCT USED FOR UNKNOWN INDICATION
  4. ZOCOR [Concomitant]
     Indication: BLOOD CHOLESTEROL
     Route: 065
  5. ALBUTEROL [Concomitant]
     Indication: PRODUCT USED FOR UNKNOWN INDICATION
  6. DIGOXIN [Concomitant]
     Indication: ATRIAL FIBRILLATION
     Route: 065
     Dates: start: 20090202
  7. MECLIZINE [Concomitant]
     Indication: DIZZINESS
     Route: 065
     Dates: start: 20090115
  8. NITROGLYCERINE [Concomitant]
     Indication: ANGINA PECTORIS
     Route: 065
     Dates: start: 20090115
  9. LACRI-LUBE [Concomitant]
     Indication: DRY EYE
     Route: 065
     Dates: start: 20060901
  10. TYLENOL [Concomitant]
     Indication: MUSCULOSKELETAL PAIN
     Route: 065
     Dates: start: 20100808

REACTIONS (1)
  - Cerebral haemorrhage [Recovered/Resolved]
